FAERS Safety Report 7618171-2 (Version None)
Quarter: 2011Q3

REPORT INFORMATION
  Report Type: 
  Country: None (occurrence: None)
  Receive Date: 20110718
  Receipt Date: 20110624
  Transmission Date: 20111222
  Serious: Yes (Death, Hospitalization)
  Sender: FDA-Public Use
  Company Number: US-GLAXOSMITHKLINE-A0869804A

PATIENT
  Age: 63 Year
  Sex: Female

DRUGS (7)
  1. NIFEDIPINE [Concomitant]
  2. EVISTA [Concomitant]
  3. CIMETIDINE [Concomitant]
  4. CAPTOPRIL [Concomitant]
  5. INSULIN [Concomitant]
  6. AVANDIA [Suspect]
     Indication: DIABETES MELLITUS
     Dosage: 4MG TWICE PER DAY
     Route: 048
     Dates: start: 20000101, end: 20040518
  7. LIPITOR [Concomitant]

REACTIONS (2)
  - HYPERTENSIVE HEART DISEASE [None]
  - MYOCARDIAL INFARCTION [None]
